FAERS Safety Report 5850947-4 (Version None)
Quarter: 2008Q3

REPORT INFORMATION
  Report Type: 
  Country: None (occurrence: None)
  Receive Date: 20080820
  Receipt Date: 20080818
  Transmission Date: 20090109
  Serious: Yes (Other)
  Sender: FDA-Public Use
  Company Number: PHEH2008US06745

PATIENT
  Sex: Female

DRUGS (3)
  1. TEKTURNA [Suspect]
     Indication: HYPERTENSION
     Dosage: 150 MG, QD
     Dates: start: 20080601
  2. TEKTURNA [Suspect]
     Dosage: UNK, UNK
  3. TEKTURNA [Suspect]
     Dosage: UNK, UNK
     Dates: start: 20080714, end: 20080717

REACTIONS (15)
  - ALOPECIA [None]
  - AMNESIA [None]
  - ANXIETY [None]
  - ARTHRALGIA [None]
  - ARTHRITIS [None]
  - CONFUSIONAL STATE [None]
  - DEPRESSION [None]
  - DISTURBANCE IN ATTENTION [None]
  - FATIGUE [None]
  - GAIT DISTURBANCE [None]
  - HEADACHE [None]
  - INSOMNIA [None]
  - ONYCHOCLASIS [None]
  - PAIN [None]
  - SOCIAL AVOIDANT BEHAVIOUR [None]
